FAERS Safety Report 17414117 (Version 3)
Quarter: 2020Q2

REPORT INFORMATION
  Report Type: Spontaneous
  Country: US (occurrence: US)
  Receive Date: 20200213
  Receipt Date: 20200406
  Transmission Date: 20200713
  Serious: No
  Sender: FDA-Public Use
  Company Number: US-PFIZER INC-2019124190

PATIENT
  Age: 67 Year
  Sex: Female
  Weight: 94 kg

DRUGS (6)
  1. LYRICA [Suspect]
     Active Substance: PREGABALIN
     Dosage: UNK
  2. RELPAX [Concomitant]
     Active Substance: ELETRIPTAN HYDROBROMIDE
     Indication: MIGRAINE
     Dosage: 20 MG, AS NEEDED
     Route: 048
     Dates: start: 2000
  3. LYRICA [Suspect]
     Active Substance: PREGABALIN
     Indication: FIBROMYALGIA
     Dosage: 150 MG, UNK
  4. LYRICA [Suspect]
     Active Substance: PREGABALIN
     Dosage: 125 MG, 1X/DAY (50 MG AND 75 MG AT THE SAME TIME FOR 125 AT NIGHT)
     Dates: start: 2003
  5. LYRICA [Suspect]
     Active Substance: PREGABALIN
     Dosage: 75 MG, 1X/DAY (1 CAPSULE AT BEDTIME 30 DAYS)
     Route: 048
     Dates: start: 2003
  6. LYRICA [Suspect]
     Active Substance: PREGABALIN
     Dosage: 125 MG, 1X/DAY (50 MG AND 75 MG AT THE SAME TIME FOR 125 AT NIGHT)
     Dates: start: 2015

REACTIONS (3)
  - Stress [Unknown]
  - Expired product administered [Unknown]
  - Therapeutic product effect incomplete [Unknown]
